FAERS Safety Report 20149611 (Version 1)
Quarter: 2021Q4

REPORT INFORMATION
  Report Type: Spontaneous
  Country: FR (occurrence: FR)
  Receive Date: 20211206
  Receipt Date: 20211206
  Transmission Date: 20220304
  Serious: Yes (Hospitalization, Other)
  Sender: FDA-Public Use
  Company Number: FR-AFSSAPS-TO20219113

PATIENT
  Age: 44 Year
  Sex: Male

DRUGS (3)
  1. BUDESONIDE [Suspect]
     Active Substance: BUDESONIDE
     Indication: Colitis
     Dosage: UNK (UNSPECIFIED)
     Route: 048
     Dates: start: 202109
  2. PREDNISONE [Suspect]
     Active Substance: PREDNISONE
     Indication: Colitis
     Dosage: UNK (UNSPECIFIED)
     Route: 048
     Dates: start: 201702
  3. TOCILIZUMAB [Suspect]
     Active Substance: TOCILIZUMAB
     Indication: Neuromyelitis optica spectrum disorder
     Dosage: UNK (UNSPECIFIED)
     Route: 058
     Dates: start: 201811, end: 202109

REACTIONS (2)
  - Pneumonia [Not Recovered/Not Resolved]
  - Opportunistic infection [Not Recovered/Not Resolved]

NARRATIVE: CASE EVENT DATE: 20211005
